FAERS Safety Report 9915550 (Version 2)
Quarter: 2014Q1

REPORT INFORMATION
  Report Type: Report from Study
  Country: TH (occurrence: TH)
  Receive Date: 20140221
  Receipt Date: 20140221
  Transmission Date: 20141002
  Serious: Yes (Hospitalization)
  Sender: FDA-Public Use
  Company Number: TH-ROCHE-1053875

PATIENT
  Age: 54 Year
  Sex: Male
  Weight: 52.2 kg

DRUGS (28)
  1. OBINUTUZUMAB [Suspect]
     Indication: DIFFUSE LARGE B-CELL LYMPHOMA
     Dosage: DOSE CONCENTRATION OF LAST DOSE TAKEN: 4MG/ML, LAST DOSE VOLUME WAS 250ML, RECENT DOSE PRIOR TO SAE:
     Route: 042
     Dates: start: 20120319
  2. CYCLOPHOSPHAMIDE [Suspect]
     Indication: DIFFUSE LARGE B-CELL LYMPHOMA
     Dosage: RECENT DOSE PRIOR TO SAE WAS 21/MAR/2012
     Route: 042
     Dates: start: 20120320
  3. DOXORUBICIN [Suspect]
     Indication: DIFFUSE LARGE B-CELL LYMPHOMA
     Dosage: RECENT DOSE PRIOR TO SAE WAS 21/MAR/2012
     Route: 042
     Dates: start: 20120320
  4. VINCRISTINE [Suspect]
     Indication: DIFFUSE LARGE B-CELL LYMPHOMA
     Dosage: RECENT DOSE PRIOR TO SAE WAS 21/MAR/2012
     Route: 040
     Dates: start: 20120320
  5. PREDNISOLONE [Suspect]
     Indication: DIFFUSE LARGE B-CELL LYMPHOMA
     Dosage: RECENT DOSE PRIOR TO SAE WAS 25/MAR/2012
     Route: 048
     Dates: start: 20120321
  6. FILGRASTIM [Concomitant]
     Indication: FEBRILE NEUTROPENIA
     Route: 058
     Dates: start: 20120321, end: 20120401
  7. HYDROCORTISONE [Concomitant]
     Indication: PROPHYLAXIS
     Route: 042
     Dates: start: 20120320, end: 20120320
  8. HYDROCORTISONE [Concomitant]
     Route: 042
     Dates: start: 20120326, end: 20120326
  9. HYDROCORTISONE [Concomitant]
     Route: 042
     Dates: start: 20120402, end: 20120402
  10. CHLORPHENIRAMINE [Concomitant]
     Indication: PROPHYLAXIS
     Route: 042
     Dates: start: 20120319, end: 20120320
  11. CHLORPHENIRAMINE [Concomitant]
     Route: 042
     Dates: start: 20120402, end: 20120402
  12. TRAMADOL [Concomitant]
     Indication: PAIN
     Route: 065
     Dates: start: 20120411, end: 20120411
  13. PARACETAMOL [Concomitant]
     Indication: FEBRILE NEUTROPENIA
     Route: 065
     Dates: start: 20120327, end: 20120403
  14. PREDNISOLONE [Concomitant]
     Indication: ADRENAL INSUFFICIENCY
     Route: 065
     Dates: start: 20120226, end: 20120705
  15. ALLOPURINOL [Concomitant]
     Indication: PROPHYLAXIS
     Route: 065
     Dates: start: 20120302, end: 20121002
  16. PETHIDINE [Concomitant]
     Indication: CHILLS
     Route: 050
     Dates: start: 20120319, end: 20120319
  17. CHLORPHENIRAMINE [Concomitant]
     Indication: CHILLS
     Route: 050
     Dates: start: 20120319, end: 20120319
  18. CHLORPHENIRAMINE [Concomitant]
     Indication: PRURITUS
     Route: 065
     Dates: start: 20120315, end: 20120325
  19. CHLORPHENIRAMINE [Concomitant]
     Route: 042
     Dates: start: 20120326, end: 20120326
  20. KALIMATE [Concomitant]
     Indication: HYPERKALAEMIA
     Route: 065
     Dates: start: 20120228, end: 20120228
  21. ACYCLOVIR [Concomitant]
     Indication: VIRAL INFECTION
     Route: 065
     Dates: start: 20120305, end: 20120409
  22. ONDANSETRON [Concomitant]
     Indication: NAUSEA
     Route: 065
     Dates: start: 20120316, end: 20120323
  23. MAGNESIUM SULPHATE [Concomitant]
     Indication: ABDOMINAL PAIN
     Route: 065
     Dates: start: 20120316, end: 20120316
  24. MILK OF MAGNESIA [Concomitant]
     Indication: CONSTIPATION
     Route: 065
     Dates: start: 20120316, end: 20120326
  25. COTRIMOXAZOLE [Concomitant]
     Indication: VIRAL INFECTION
     Dosage: DOSE 400/80MG
     Route: 048
     Dates: start: 20120323, end: 20120407
  26. LAMIVUDINE [Concomitant]
     Indication: HEPATITIS B
     Route: 048
     Dates: start: 20120322, end: 20120420
  27. LAMIVUDINE [Concomitant]
     Indication: VIRAL INFECTION
  28. CEFTAZIDIME PENTAHYDRATE [Concomitant]
     Indication: FEBRILE NEUTROPENIA
     Route: 042
     Dates: start: 20120328, end: 20120402

REACTIONS (2)
  - Febrile neutropenia [Recovered/Resolved]
  - Thrombocytopenia [Recovered/Resolved]
